FAERS Safety Report 4512809-4 (Version None)
Quarter: 2004Q4

REPORT INFORMATION
  Report Type: 
  Country: None (occurrence: None)
  Receive Date: 20041119
  Receipt Date: 20041119
  Transmission Date: 20050328
  Serious: Yes (Hospitalization)
  Sender: FDA-Public Use
  Company Number: None

PATIENT
  Sex: Female
  Weight: 105 kg

DRUGS (2)
  1. OLANZAPINE [Suspect]
     Indication: BIPOLAR DISORDER
     Dosage: 25 MG PO HS
     Route: 048
     Dates: start: 20030707, end: 20040601
  2. GABAPENTIN [Suspect]
     Indication: BIPOLAR DISORDER
     Dosage: 400 MG PO AM 800 MG HS
     Route: 048
     Dates: start: 20030404, end: 20040601

REACTIONS (1)
  - IDIOPATHIC THROMBOCYTOPENIC PURPURA [None]
